FAERS Safety Report 25387448 (Version 1)
Quarter: 2025Q2

REPORT INFORMATION
  Report Type: Report from Study
  Country: BR (occurrence: BR)
  Receive Date: 20250602
  Receipt Date: 20250602
  Transmission Date: 20250716
  Serious: Yes (Hospitalization, Other)
  Sender: JOHNSON AND JOHNSON
  Company Number: BR-JNJFOC-20241165930

PATIENT
  Age: 64 Year
  Sex: Male
  Weight: 90 kg

DRUGS (6)
  1. TALVEY [Suspect]
     Active Substance: TALQUETAMAB-TGVS
     Indication: Plasma cell myeloma
     Dosage: EXP DATE:-FEB-2026
     Route: 058
     Dates: start: 20240906, end: 20241219
  2. TALVEY [Suspect]
     Active Substance: TALQUETAMAB-TGVS
     Route: 058
     Dates: start: 20250331
  3. TALVEY [Suspect]
     Active Substance: TALQUETAMAB-TGVS
     Route: 058
     Dates: start: 20250402
  4. TALVEY [Suspect]
     Active Substance: TALQUETAMAB-TGVS
     Route: 058
     Dates: start: 20250404
  5. TALVEY [Suspect]
     Active Substance: TALQUETAMAB-TGVS
     Route: 058
     Dates: start: 20250406
  6. TALVEY [Suspect]
     Active Substance: TALQUETAMAB-TGVS
     Route: 058
     Dates: start: 20240906

REACTIONS (14)
  - Pyrexia [Recovered/Resolved]
  - Pneumonia [Recovering/Resolving]
  - Hypotension [Recovered/Resolved]
  - Sensory loss [Recovering/Resolving]
  - Onychoclasis [Recovering/Resolving]
  - Hypersensitivity [Recovering/Resolving]
  - Pain [Recovering/Resolving]
  - Dry skin [Recovering/Resolving]
  - Oropharyngeal pain [Recovering/Resolving]
  - Inappropriate schedule of product administration [Unknown]
  - Off label use [Unknown]
  - Insomnia [Unknown]
  - Dizziness [Unknown]
  - Influenza like illness [Unknown]

NARRATIVE: CASE EVENT DATE: 20240901
